FAERS Safety Report 8163520-2 (Version None)
Quarter: 2012Q1

REPORT INFORMATION
  Report Type: 
  Country: None (occurrence: None)
  Receive Date: 20120224
  Receipt Date: 20120213
  Transmission Date: 20120608
  Serious: Yes (Hospitalization)
  Sender: FDA-Public Use
  Company Number: FR-ELI_LILLY_AND_COMPANY-FR201202003191

PATIENT
  Age: 76 Year
  Sex: Male

DRUGS (2)
  1. ALIMTA [Suspect]
     Dosage: 1050 MG, SINGLE
     Route: 042
     Dates: start: 20111103, end: 20111103
  2. TARCEVA [Concomitant]
     Dosage: 150 MG, SINGLE
     Dates: start: 20110601, end: 20111031

REACTIONS (5)
  - OEDEMA [None]
  - XEROSIS [None]
  - ERYTHEMA [None]
  - TOXIC SKIN ERUPTION [None]
  - CHEILITIS [None]
